FAERS Safety Report 19451703 (Version 1)
Quarter: 2021Q2

REPORT INFORMATION
  Report Type: Spontaneous
  Country: BR (occurrence: US)
  Receive Date: 20210623
  Receipt Date: 20210623
  Transmission Date: 20210717
  Serious: Yes (Other)
  Sender: FDA-Public Use
  Company Number: BR-ABBVIE-21P-020-3876656-00

PATIENT
  Sex: Female

DRUGS (11)
  1. METAMIZOLE [Concomitant]
     Active Substance: METAMIZOLE
     Indication: PYREXIA
  2. LORATADINE. [Concomitant]
     Active Substance: LORATADINE
     Indication: HYPERSENSITIVITY
     Dosage: LAST TIME PATIENT REQUESTED IT AT THE HEALTH CENTER WAS IN ? FEB?2021
     Route: 048
  3. PHENOBARBITAL. [Concomitant]
     Active Substance: PHENOBARBITAL
     Indication: PRODUCT USED FOR UNKNOWN INDICATION
     Dosage: BELIEVES THE PRESCRIBED FREQUENCY IS 3 TIMES A DAY
     Route: 048
  4. FLUOXETINE [Concomitant]
     Active Substance: FLUOXETINE HYDROCHLORIDE
     Indication: PRODUCT USED FOR UNKNOWN INDICATION
     Dosage: FIRST TIME PATIENT HAD IT DISPENSED ON THAT HEALTH CENTER IS ?MAR?2019.
     Route: 048
  5. METAMIZOLE [Concomitant]
     Active Substance: METAMIZOLE
     Indication: PAIN
     Dosage: LAST TIME SHE GOT IT FROM THE HEALTH CENTER DATE WAS ?FEB?2021
     Route: 048
  6. DIVALPROEX SODIUM ER [Suspect]
     Active Substance: DIVALPROEX SODIUM
     Dosage: FIRST RECORD OF TREATMENT MAR?2019, BUT UNCLEAR IF USED AND BOUGHT IT.
     Route: 048
  7. PARACETAMOL [Concomitant]
     Active Substance: ACETAMINOPHEN
     Indication: PYREXIA
  8. ALENDRONIC ACID [Concomitant]
     Active Substance: ALENDRONIC ACID
     Indication: PRODUCT USED FOR UNKNOWN INDICATION
     Dosage: LAST TIME PATIENT GOT IT IN THE HEALTH CENTER WAS IN ?NOV?2020 AND TO LAST FOR 2 MONTHS
     Route: 048
  9. PARACETAMOL [Concomitant]
     Active Substance: ACETAMINOPHEN
     Indication: PAIN
     Dosage: TAKES IT SPORADICALLY; LAST TIME SHE GOT IT FROM THE HEALTH CENTER DATE WAS ?FEB?2021
     Route: 048
  10. CARBAMAZEPINE. [Concomitant]
     Active Substance: CARBAMAZEPINE
     Indication: PRODUCT USED FOR UNKNOWN INDICATION
     Dosage: FIRST TIME PATIENT HAD IT DISPENSED ON THAT HEALTH CENTER DATE ?FEB?2019.
     Route: 048
  11. DIVALPROEX SODIUM ER [Suspect]
     Active Substance: DIVALPROEX SODIUM
     Indication: PRODUCT USED FOR UNKNOWN INDICATION
     Dosage: 500 MILLIGRAM
     Route: 048

REACTIONS (5)
  - Seizure [Unknown]
  - Product quality issue [Unknown]
  - Drug ineffective [Unknown]
  - Inappropriate schedule of product administration [Unknown]
  - Product residue present [Unknown]
